FAERS Safety Report 11121412 (Version 1)
Quarter: 2015Q2

REPORT INFORMATION
  Report Type: Spontaneous
  Country: NL (occurrence: NL)
  Receive Date: 20150519
  Receipt Date: 20150519
  Transmission Date: 20150821
  Serious: Yes (Hospitalization)
  Sender: FDA-Public Use
  Company Number: NL-TEVA-561436ISR

PATIENT
  Sex: Male

DRUGS (10)
  1. FENPROCOUMON TABLET 3MG [Concomitant]
     Active Substance: PHENPROCOUMON
     Route: 048
  2. BUMETANIDE TABLET 1MG [Concomitant]
     Dosage: 1 MG ONE DAY, THE OTHER DAY TWICE DAILY
     Route: 048
  3. METFORMIN [Suspect]
     Active Substance: METFORMIN HYDROCHLORIDE
     Indication: DIABETES MELLITUS
     Dosage: TWICE DAILY
     Route: 048
  4. SPIRONOLACTON TABLET 25MG [Concomitant]
     Active Substance: SPIRONOLACTONE
     Dosage: ONCE DAILY
     Route: 048
  5. PERINDOPRIL TABLET 4MG (ERBUMINE) [Concomitant]
     Dosage: 4 MILLIGRAM DAILY; ONCE DAILY ONE
     Route: 048
  6. CARVEDILOL TABLET 25MG [Concomitant]
     Dosage: TWICE A DAY
     Route: 048
  7. PANTOPRAZOL TABLET MSR 40MG [Concomitant]
     Active Substance: PANTOPRAZOLE SODIUM
     Dosage: ONCE DAILY
     Route: 048
  8. LANTUS SOLOSTAR INJ 100E/ML PEN 3ML [Concomitant]
     Dosage: ACCORDING TO SCHEME
     Route: 058
  9. NITROGLYCERINE SPRAY SUBLING. 0,4MG/DO [Concomitant]
     Dosage: ACCORDING TO PRESCRIPTION
     Route: 060
  10. ATORVASTATINE TABLET 20MG (ALS CA-ZOUT) [Concomitant]
     Dosage: 20 MILLIGRAM DAILY; ONCE DAILY ONE
     Route: 048

REACTIONS (5)
  - Diarrhoea [Unknown]
  - Pneumonia klebsiella [Unknown]
  - Renal failure [Recovering/Resolving]
  - Lactic acidosis [Recovered/Resolved]
  - Sepsis [Unknown]

NARRATIVE: CASE EVENT DATE: 201404
